FAERS Safety Report 5167837-5 (Version None)
Quarter: 2006Q4

REPORT INFORMATION
  Report Type: 
  Country: None (occurrence: None)
  Receive Date: 20061130
  Receipt Date: 20001116
  Transmission Date: 20070319
  Serious: Yes (Other)
  Sender: FDA-Public Use
  Company Number: 2006132880

PATIENT
  Sex: Male

DRUGS (2)
  1. VIAGRA [Suspect]
     Indication: ERECTILE DYSFUNCTION
  2. DRUGS USED IN ERECTILE DYSFUNCTION (OTHER UROLOGICALS, INCL ANTISPASMO [Suspect]
     Indication: ERECTILE DYSFUNCTION

REACTIONS (2)
  - PENIS DISORDER [None]
  - PEYRONIE'S DISEASE [None]
